FAERS Safety Report 17919686 (Version 1)
Quarter: 2020Q2

REPORT INFORMATION
  Report Type: Spontaneous
  Country: DE (occurrence: DE)
  Receive Date: 20200619
  Receipt Date: 20200619
  Transmission Date: 20200714
  Serious: Yes (Death, Other)
  Sender: FDA-Public Use
  Company Number: NVSC2020DE170816

PATIENT
  Age: 67 Year
  Sex: Male

DRUGS (1)
  1. DEXAMETHASONE. [Suspect]
     Active Substance: DEXAMETHASONE
     Indication: EPENDYMOMA
     Dosage: 24 MG, QD
     Route: 065

REACTIONS (10)
  - Acute respiratory distress syndrome [Fatal]
  - Hepatic failure [Not Recovered/Not Resolved]
  - Disseminated intravascular coagulation [Not Recovered/Not Resolved]
  - Fungal sepsis [Fatal]
  - Pneumocystis jirovecii infection [Not Recovered/Not Resolved]
  - Legionella infection [Not Recovered/Not Resolved]
  - Candida infection [Not Recovered/Not Resolved]
  - Product use in unapproved indication [Unknown]
  - Disseminated cytomegaloviral infection [Not Recovered/Not Resolved]
  - Staphylococcal infection [Recovered/Resolved]
